FAERS Safety Report 5745343-4 (Version None)
Quarter: 2008Q2

REPORT INFORMATION
  Report Type: 
  Country: None (occurrence: None)
  Receive Date: 20080521
  Receipt Date: 20080514
  Transmission Date: 20081010
  Serious: Yes (Hospitalization)
  Sender: FDA-Public Use
  Company Number: US-MERCK-0805USA03367

PATIENT

DRUGS (2)
  1. JANUVIA [Suspect]
     Indication: TYPE 2 DIABETES MELLITUS
     Route: 048
  2. [THERAPY UNSPECIFIED] [Concomitant]
     Route: 065

REACTIONS (1)
  - RENAL FAILURE [None]
